APPROVED DRUG PRODUCT: DIOVAN HCT
Active Ingredient: HYDROCHLOROTHIAZIDE; VALSARTAN
Strength: 12.5MG;80MG
Dosage Form/Route: TABLET;ORAL
Application: N020818 | Product #001 | TE Code: AB
Applicant: NOVARTIS PHARMACEUTICALS CORP
Approved: Mar 6, 1998 | RLD: Yes | RS: No | Type: RX